FAERS Safety Report 15814827 (Version 6)
Quarter: 2020Q2

REPORT INFORMATION
  Report Type: Spontaneous
  Country: CN (occurrence: CN)
  Receive Date: 20190111
  Receipt Date: 20200427
  Transmission Date: 20200713
  Serious: Yes (Hospitalization, Other)
  Sender: FDA-Public Use
  Company Number: CN-AMGEN-CHNSP2018178111

PATIENT
  Age: 43 Year
  Sex: Male

DRUGS (7)
  1. REGPARA [Suspect]
     Active Substance: CINACALCET HYDROCHLORIDE
     Dosage: 50 MILLIGRAM, QD
     Route: 048
     Dates: start: 20181205
  2. ORYZANOL [Concomitant]
     Active Substance: GAMMA ORYZANOL
     Indication: TINNITUS
     Dosage: 3 DF, TID
     Route: 048
     Dates: start: 201812
  3. ATORVASTATIN [Concomitant]
     Active Substance: ATORVASTATIN
     Indication: HYPERLIPIDAEMIA
     Dosage: UNK
     Dates: start: 201811
  4. BISOPROLOL FUMARATE. [Concomitant]
     Active Substance: BISOPROLOL FUMARATE
     Indication: ARRHYTHMIA
     Dosage: 1/2 TABLET, QD
     Route: 048
     Dates: start: 2018
  5. MECOBALAMIN [Concomitant]
     Active Substance: METHYLCOBALAMIN
     Indication: TINNITUS
     Dosage: 1 DF, TID
     Route: 048
     Dates: start: 201812
  6. FELODIPINE. [Concomitant]
     Active Substance: FELODIPINE
     Indication: HYPERTENSION
     Dosage: UNK
     Dates: start: 201812
  7. REGPARA [Suspect]
     Active Substance: CINACALCET HYDROCHLORIDE
     Indication: HYPERPARATHYROIDISM SECONDARY
     Dosage: 25 MILLIGRAM, QD
     Route: 048
     Dates: start: 201811, end: 20181204

REACTIONS (5)
  - Hyperlipidaemia [Unknown]
  - Therapeutic response decreased [Unknown]
  - Chest discomfort [Recovered/Resolved]
  - Haemorrhage intracranial [Recovering/Resolving]
  - Abdominal distension [Recovering/Resolving]

NARRATIVE: CASE EVENT DATE: 201810
